FAERS Safety Report 12898370 (Version 3)
Quarter: 2016Q4

REPORT INFORMATION
  Report Type: Other
  Country: US (occurrence: US)
  Receive Date: 20161031
  Receipt Date: 20161209
  Transmission Date: 20170207
  Serious: Yes (Hospitalization, Other)
  Sender: FDA-Public Use
  Company Number: US-BELCHER PHARMACEUTICALS, LLC-2016VTS00250

PATIENT
  Age: 86 Year
  Sex: Male
  Weight: 108.84 kg

DRUGS (6)
  1. HYOSCYAMINE SULFATE. [Suspect]
     Active Substance: HYOSCYAMINE SULFATE
     Indication: IRRITABLE BOWEL SYNDROME
     Dosage: 1 TABLETS, 1X/DAY
     Route: 060
  2. CELEBREX [Concomitant]
     Active Substance: CELECOXIB
     Dosage: 200 MG, 1X/DAY
  3. HYOSCYAMINE SULFATE. [Suspect]
     Active Substance: HYOSCYAMINE SULFATE
     Dosage: 2 TABLETS, 1X/DAY
     Route: 060
  4. WARFARIN [Concomitant]
     Active Substance: WARFARIN
     Dosage: 4 MG, 1X/DAY
     Dates: start: 20161006
  5. WARFARIN [Concomitant]
     Active Substance: WARFARIN
     Dosage: 5-6 MG ONCE A DAY
  6. LISINOPRIL. [Concomitant]
     Active Substance: LISINOPRIL
     Dosage: 20 MG, 1X/DAY

REACTIONS (9)
  - Hallucination [Unknown]
  - Disorientation [Unknown]
  - Dysarthria [Unknown]
  - Seizure [Unknown]
  - Vision blurred [Unknown]
  - Dizziness [Unknown]
  - Discomfort [Unknown]
  - Neurological symptom [Unknown]
  - Dementia [Unknown]

NARRATIVE: CASE EVENT DATE: 20160716
